FAERS Safety Report 5170352-6 (Version None)
Quarter: 2006Q4

REPORT INFORMATION
  Report Type: 
  Country: None (occurrence: None)
  Receive Date: 20061204
  Receipt Date: 20061127
  Transmission Date: 20070319
  Serious: Yes (Hospitalization)
  Sender: FDA-Public Use
  Company Number: 2006BI017208

PATIENT
  Age: 35 Year
  Sex: Female
  Weight: 53 kg

DRUGS (3)
  1. AVONEX [Suspect]
     Indication: MULTIPLE SCLEROSIS
     Dosage: 30 UG; QW; IM
     Route: 030
     Dates: start: 20061010, end: 20061001
  2. AVONEX [Suspect]
     Indication: MULTIPLE SCLEROSIS
     Dosage: 30 UG; QW; IM
     Route: 030
     Dates: start: 20061101
  3. TAMOXIFENCITRAT [Concomitant]

REACTIONS (5)
  - ASTHENIA [None]
  - HEADACHE [None]
  - MYALGIA [None]
  - NASOPHARYNGITIS [None]
  - RHINITIS [None]
